FAERS Safety Report 16111843 (Version 1)
Quarter: 2019Q2

REPORT INFORMATION
  Report Type: Spontaneous
  Country: US (occurrence: US)
  Receive Date: 20190322
  Receipt Date: 20190322
  Transmission Date: 20190711
  Serious: Yes (Disabling)
  Sender: FDA-Public Use
  Company Number: None

PATIENT
  Age: 47 Year
  Sex: Female
  Weight: 117 kg

DRUGS (9)
  1. TRAZODONE [Concomitant]
     Active Substance: TRAZODONE HYDROCHLORIDE
  2. BACLOFEN. [Concomitant]
     Active Substance: BACLOFEN
  3. ZOLOFT [Concomitant]
     Active Substance: SERTRALINE HYDROCHLORIDE
  4. KLONOPIN [Concomitant]
     Active Substance: CLONAZEPAM
  5. GABAPENTIN. [Concomitant]
     Active Substance: GABAPENTIN
     Indication: ANXIETY
     Dosage: ?          QUANTITY:90 TABLET(S);?
     Route: 048
     Dates: start: 20180801
  6. OXYCODONE [Concomitant]
     Active Substance: OXYCODONE
  7. TYLENOL [Concomitant]
     Active Substance: ACETAMINOPHEN
  8. TUMS [Concomitant]
     Active Substance: CALCIUM CARBONATE
  9. MULTIVITAMIN [Concomitant]
     Active Substance: VITAMINS

REACTIONS (11)
  - Eye pain [None]
  - Musculoskeletal stiffness [None]
  - Memory impairment [None]
  - Fatigue [None]
  - Attention deficit/hyperactivity disorder [None]
  - Withdrawal syndrome [None]
  - Depression [None]
  - Coordination abnormal [None]
  - Reflexes abnormal [None]
  - Headache [None]
  - Impaired work ability [None]

NARRATIVE: CASE EVENT DATE: 20190222
